FAERS Safety Report 4565258-7 (Version None)
Quarter: 2005Q1

REPORT INFORMATION
  Report Type: 
  Country: None (occurrence: None)
  Receive Date: 20050131
  Receipt Date: 20041119
  Transmission Date: 20050727
  Serious: Yes (Hospitalization, Other)
  Sender: FDA-Public Use
  Company Number: PHBS2004JP15795

PATIENT
  Age: 83 Year
  Sex: Male

DRUGS (8)
  1. SLOW-K [Concomitant]
     Dosage: 600 MG/DAY
     Route: 048
  2. LASIX [Concomitant]
     Dosage: 40 MG/DAY
     Route: 048
  3. ALDACTONE [Concomitant]
     Dosage: 25 MG/DAY
     Route: 048
  4. WARFARIN [Concomitant]
     Dosage: 1 MG/DAY
     Route: 048
  5. SIGMART [Concomitant]
     Dosage: 15 MG/DAY
     Route: 048
  6. SELBEX [Concomitant]
     Dosage: 150 MG/DAY
     Route: 048
  7. TEGRETOL [Suspect]
     Indication: NEURALGIA
     Dosage: 200 MG/DAY
     Route: 048
     Dates: start: 20041004, end: 20041109
  8. TEGRETOL [Suspect]
     Dosage: 400 MG/DAY
     Route: 048
     Dates: start: 20041110, end: 20041101

REACTIONS (3)
  - RESPIRATORY FUME INHALATION DISORDER [None]
  - THERMAL BURN [None]
  - VISUAL ACUITY REDUCED [None]
